FAERS Safety Report 8925817 (Version 10)
Quarter: 2015Q4

REPORT INFORMATION
  Report Type: Spontaneous
  Country: US (occurrence: US)
  Receive Date: 20121126
  Receipt Date: 20151030
  Transmission Date: 20160305
  Serious: Yes (Hospitalization, Disabling, Other)
  Sender: FDA-Public Use
  Company Number: US-009507513-1211USA008145

PATIENT
  Sex: Female

DRUGS (6)
  1. FOSAMAX [Suspect]
     Active Substance: ALENDRONATE SODIUM
     Dosage: UNK
     Route: 048
     Dates: start: 1995, end: 20080307
  2. ALENDRONATE SODIUM. [Suspect]
     Active Substance: ALENDRONATE SODIUM
     Indication: OSTEOPOROSIS
     Dosage: 70 MG, QW
     Route: 048
     Dates: start: 200803, end: 200804
  3. CALCIUM (UNSPECIFIED) [Concomitant]
     Active Substance: CALCIUM
     Indication: VITAMIN SUPPLEMENTATION
     Dosage: 600 MG, DAILY
     Route: 065
     Dates: start: 1985
  4. FOSAMAX [Suspect]
     Active Substance: ALENDRONATE SODIUM
     Dosage: 35 MG, QW
     Route: 048
     Dates: end: 200509
  5. FOSAMAX [Suspect]
     Active Substance: ALENDRONATE SODIUM
     Indication: OSTEOPOROSIS
     Dosage: 70 MG, QW
     Route: 048
     Dates: start: 200511, end: 200803
  6. CENTRUM SILVER [Concomitant]
     Active Substance: MINERALS\VITAMINS
     Indication: VITAMIN SUPPLEMENTATION
     Dosage: 600 MG, DAILY
     Route: 065
     Dates: start: 1985

REACTIONS (35)
  - Multiple fractures [Unknown]
  - Chronic kidney disease [Unknown]
  - Confusional state [Unknown]
  - Fall [Unknown]
  - Fall [Unknown]
  - Upper limb fracture [Unknown]
  - Dementia Alzheimer^s type [Unknown]
  - Pulmonary infarction [Unknown]
  - Calcium deficiency [Unknown]
  - Pernicious anaemia [Unknown]
  - Femur fracture [Unknown]
  - Acute kidney injury [Unknown]
  - Depression [Not Recovered/Not Resolved]
  - Anxiety [Not Recovered/Not Resolved]
  - Fall [Unknown]
  - Weight decreased [Unknown]
  - Femur fracture [Unknown]
  - Hypocalcaemia [Recovered/Resolved]
  - Incorrect dose administered [Unknown]
  - Back pain [Unknown]
  - Blood potassium decreased [Unknown]
  - Postoperative fever [Recovered/Resolved]
  - Bone density decreased [Unknown]
  - Depression [Recovering/Resolving]
  - Chest pain [Unknown]
  - Hip fracture [Recovered/Resolved]
  - Osteoporosis [Unknown]
  - Renal failure [Unknown]
  - Hypoxia [Recovering/Resolving]
  - Anaemia [Recovering/Resolving]
  - Blood cholesterol increased [Unknown]
  - Intramedullary rod insertion [Unknown]
  - Pulmonary embolism [Unknown]
  - Spinal compression fracture [Unknown]
  - Anxiety [Recovering/Resolving]

NARRATIVE: CASE EVENT DATE: 1995
